FAERS Safety Report 18899663 (Version 1)
Quarter: 2021Q1

REPORT INFORMATION
  Report Type: Report from Study
  Country: CA (occurrence: CA)
  Receive Date: 20210216
  Receipt Date: 20210216
  Transmission Date: 20210420
  Serious: Yes (Other)
  Sender: FDA-Public Use
  Company Number: CA-PFIZER INC-2021106412

PATIENT
  Age: 52 Year
  Sex: Female

DRUGS (15)
  1. PREDNISONE. [Concomitant]
     Active Substance: PREDNISONE
  2. ACETAMINOPHEN. [Concomitant]
     Active Substance: ACETAMINOPHEN
     Indication: PREMEDICATION
     Dosage: 650 MG
     Route: 048
  3. SYNTHROID [Concomitant]
     Active Substance: LEVOTHYROXINE SODIUM
  4. WARFARIN [Concomitant]
     Active Substance: WARFARIN
  5. GRAVOL [Concomitant]
     Active Substance: DIMENHYDRINATE
  6. ATIVAN [Concomitant]
     Active Substance: LORAZEPAM
  7. DIPHENHYDRAMINE. [Concomitant]
     Active Substance: DIPHENHYDRAMINE
     Dosage: 50 MG
     Route: 048
  8. RITUXIMAB. [Suspect]
     Active Substance: RITUXIMAB
     Indication: NEUROMYELITIS OPTICA SPECTRUM DISORDER
     Dosage: 1000 MG, EVERY 15 DAYS
     Route: 042
  9. PREGABALIN. [Concomitant]
     Active Substance: PREGABALIN
  10. DIPHENHYDRAMINE. [Concomitant]
     Active Substance: DIPHENHYDRAMINE
     Indication: PREMEDICATION
     Dosage: 50 MG
     Route: 048
  11. ZOPICLONE [Concomitant]
     Active Substance: ZOPICLONE
  12. AZATHIOPRINE. [Concomitant]
     Active Substance: AZATHIOPRINE
     Route: 065
  13. DIPHENHYDRAMINE. [Concomitant]
     Active Substance: DIPHENHYDRAMINE
     Dosage: 50 MG
     Route: 048
  14. METHYLPREDNISOLONE. [Concomitant]
     Active Substance: METHYLPREDNISOLONE
     Indication: PREMEDICATION
     Dosage: 100 MG
     Route: 042
  15. RITUXIMAB. [Suspect]
     Active Substance: RITUXIMAB
     Indication: MYELITIS TRANSVERSE

REACTIONS (7)
  - Blood pressure systolic increased [Recovered/Resolved]
  - Infusion related reaction [Recovered/Resolved]
  - Blood pressure systolic abnormal [Recovered/Resolved]
  - Kidney infection [Recovered/Resolved]
  - Oxygen saturation decreased [Recovered/Resolved]
  - Blood pressure increased [Recovered/Resolved]
  - Heart rate decreased [Recovered/Resolved]
